FAERS Safety Report 7933728-7 (Version None)
Quarter: 2011Q4

REPORT INFORMATION
  Report Type: 
  Country: None (occurrence: None)
  Receive Date: 20111122
  Receipt Date: 20111117
  Transmission Date: 20120403
  Serious: No
  Sender: FDA-Public Use
  Company Number: US-PFIZER INC-2011282398

PATIENT
  Sex: Female
  Weight: 63 kg

DRUGS (4)
  1. LOPRESSOR [Concomitant]
     Indication: HYPERTENSION
     Dosage: UNK
  2. LIPITOR [Suspect]
     Indication: BLOOD CHOLESTEROL INCREASED
     Dosage: 40 MG, 1X/DAY
     Route: 048
     Dates: start: 20110903
  3. NORVASC [Concomitant]
     Indication: HYPERTENSION
     Dosage: UNK
  4. FIORICET [Concomitant]
     Indication: PAIN
     Dosage: UNK

REACTIONS (1)
  - DYSPHAGIA [None]
